FAERS Safety Report 13844303 (Version 5)
Quarter: 2019Q2

REPORT INFORMATION
  Report Type: Report from Study
  Country: US (occurrence: US)
  Receive Date: 20170808
  Receipt Date: 20190604
  Transmission Date: 20190711
  Serious: Yes (Death, Hospitalization, Other)
  Sender: FDA-Public Use
  Company Number: US-ROCHE-1901789

PATIENT
  Age: 88 Year
  Sex: Female
  Weight: 61.18 kg

DRUGS (17)
  1. OMEPRAZOLE. [Concomitant]
     Active Substance: OMEPRAZOLE
  2. PANTOPRAZOLE [Concomitant]
     Active Substance: PANTOPRAZOLE
  3. ALPRAZOLAM. [Concomitant]
     Active Substance: ALPRAZOLAM
  4. BEVACIZUMAB. [Suspect]
     Active Substance: BEVACIZUMAB
     Route: 042
     Dates: start: 20161209
  5. IPILIMUMAB [Suspect]
     Active Substance: IPILIMUMAB
     Indication: MALIGNANT MELANOMA
     Route: 011
     Dates: start: 20170119
  6. LEVOTHYROXINE. [Concomitant]
     Active Substance: LEVOTHYROXINE
  7. ASPIRIN [ACETYLSALICYLIC ACID] [Concomitant]
     Active Substance: ASPIRIN
  8. AMLODIPINE [Concomitant]
     Active Substance: AMLODIPINE BESYLATE
  9. LABETALOL [Concomitant]
     Active Substance: LABETALOL\LABETALOL HYDROCHLORIDE
  10. ESCITALOPRAM [Concomitant]
     Active Substance: ESCITALOPRAM OXALATE
  11. IPILIMUMAB [Suspect]
     Active Substance: IPILIMUMAB
     Route: 011
  12. LOSARTAN/HCTZ [Concomitant]
     Active Substance: HYDROCHLOROTHIAZIDE\LOSARTAN
  13. LORATADINE. [Concomitant]
     Active Substance: LORATADINE
  14. SUCRALFATE. [Concomitant]
     Active Substance: SUCRALFATE
  15. TRAMADOL. [Concomitant]
     Active Substance: TRAMADOL
  16. METHOCARBAMOL. [Concomitant]
     Active Substance: METHOCARBAMOL
  17. BEVACIZUMAB. [Suspect]
     Active Substance: BEVACIZUMAB
     Indication: MALIGNANT MELANOMA
     Dosage: INDUCTION (CYCLE=21 DAYS)?ON DAY 1 OF CYCLES 1-4?DOSE 916 MG.
     Route: 042
     Dates: start: 20161116

REACTIONS (6)
  - Lung infection [Unknown]
  - Hypokalaemia [Recovered/Resolved]
  - Transient ischaemic attack [Recovered/Resolved]
  - Hypertension [Unknown]
  - Atrial fibrillation [Unknown]
  - Cardiac arrest [Fatal]

NARRATIVE: CASE EVENT DATE: 20170117
